FAERS Safety Report 7573841-X (Version None)
Quarter: 2011Q2

REPORT INFORMATION
  Report Type: 
  Country: None (occurrence: None)
  Receive Date: 20110627
  Receipt Date: 20110620
  Transmission Date: 20111010
  Serious: Yes (Death)
  Sender: FDA-Public Use
  Company Number: A0922454A

PATIENT
  Age: 77 Year
  Sex: Male

DRUGS (4)
  1. AVODART [Suspect]
     Dosage: .5MG PER DAY
     Route: 048
     Dates: start: 20090101
  2. LANOXIN [Suspect]
     Dosage: .125MG PER DAY
     Route: 048
     Dates: start: 20060101
  3. LIPITOR [Concomitant]
  4. ALLEGRA [Concomitant]

REACTIONS (1)
  - DEATH [None]
